FAERS Safety Report 7730161-8 (Version None)
Quarter: 2011Q3

REPORT INFORMATION
  Report Type: 
  Country: None (occurrence: None)
  Receive Date: 20110906
  Receipt Date: 20110901
  Transmission Date: 20111222
  Serious: Yes (Other)
  Sender: FDA-Public Use
  Company Number: JP-PFIZER INC-2011204613

PATIENT
  Age: 53 Year
  Sex: Male

DRUGS (3)
  1. JANUVIA [Concomitant]
     Dosage: UNK
  2. ZETIA [Concomitant]
     Dosage: UNK
  3. VARENICLINE TARTRATE [Suspect]
     Indication: SMOKING CESSATION THERAPY
     Dosage: UNK
     Route: 048
     Dates: start: 20101201

REACTIONS (2)
  - AMNESIA [None]
  - ALCOHOL POISONING [None]
